FAERS Safety Report 24228875 (Version 3)
Quarter: 2025Q3

REPORT INFORMATION
  Report Type: Spontaneous
  Country: US (occurrence: US)
  Receive Date: 20240820
  Receipt Date: 20250905
  Transmission Date: 20251020
  Serious: Yes (Hospitalization, Other)
  Sender: DOMPE FARMACEUTICI
  Company Number: US-FARMAPROD-202407-2541

PATIENT
  Age: 90 Year
  Sex: Female

DRUGS (13)
  1. OXERVATE [Suspect]
     Active Substance: CENEGERMIN-BKBJ
     Indication: Neurotrophic keratopathy
     Route: 047
     Dates: start: 20240701
  2. OXERVATE [Suspect]
     Active Substance: CENEGERMIN-BKBJ
  3. OXERVATE [Suspect]
     Active Substance: CENEGERMIN-BKBJ
  4. MYRBETRIQ [Concomitant]
     Active Substance: MIRABEGRON
  5. LISINOPRIL [Concomitant]
     Active Substance: LISINOPRIL
  6. DONEPEZIL HYDROCHLORIDE [Concomitant]
     Active Substance: DONEPEZIL HYDROCHLORIDE
  7. ATORVASTATIN CALCIUM [Concomitant]
     Active Substance: ATORVASTATIN CALCIUM
  8. AMLODIPINE BESYLATE [Concomitant]
     Active Substance: AMLODIPINE BESYLATE
  9. ACYCLOVIR [Concomitant]
     Active Substance: ACYCLOVIR
  10. TYLENOL [Concomitant]
     Active Substance: ACETAMINOPHEN
  11. DALFAMPRIDINE [Concomitant]
     Active Substance: DALFAMPRIDINE
  12. FLUOROMETHOLONE [Concomitant]
     Active Substance: FLUOROMETHOLONE
  13. REFRESH TEARS [Concomitant]
     Active Substance: CARBOXYMETHYLCELLULOSE SODIUM

REACTIONS (6)
  - Tibia fracture [Unknown]
  - Fibula fracture [Unknown]
  - Cerebrovascular accident [Unknown]
  - Fall [Unknown]
  - Eye pain [Recovering/Resolving]
  - Product use complaint [Unknown]

NARRATIVE: CASE EVENT DATE: 20240806
